FAERS Safety Report 4953166-9 (Version None)
Quarter: 2006Q1

REPORT INFORMATION
  Report Type: 
  Country: None (occurrence: None)
  Receive Date: 20060324
  Receipt Date: 20060208
  Transmission Date: 20060701
  Serious: Yes (Death, Hospitalization)
  Sender: FDA-Public Use
  Company Number: US-MERCK-0602USA02317

PATIENT
  Age: 79 Year
  Sex: Male
  Weight: 64 kg

DRUGS (1)
  1. VIOXX [Suspect]
     Route: 048
     Dates: start: 20030304, end: 20040208

REACTIONS (2)
  - CARDIO-RESPIRATORY ARREST [None]
  - MYOCARDIAL INFARCTION [None]
